FAERS Safety Report 8939396 (Version 2)
Quarter: 2012Q4

REPORT INFORMATION
  Report Type: 
  Country: US (occurrence: US)
  Receive Date: 20121203
  Receipt Date: 20121226
  Transmission Date: 20130627
  Serious: No
  Sender: FDA-Public Use
  Company Number: US-PFIZER INC-2012300664

PATIENT
  Age: 71 Year
  Sex: Male
  Weight: 97.51 kg

DRUGS (7)
  1. LIPITOR [Suspect]
     Indication: BLOOD CHOLESTEROL ABNORMAL
     Dosage: 40 mg, daily
     Route: 048
  2. LIPITOR [Suspect]
     Dosage: 20 mg, daily
     Route: 048
  3. LIPITOR [Suspect]
     Dosage: UNK, daily (splitting 40 mg tablets)
     Route: 048
  4. ASPIRIN [Concomitant]
     Indication: ANTICOAGULANT THERAPY
     Dosage: 162 mg (two tablets of 81 mg) daily
     Dates: start: 2000
  5. NYSTAN [Concomitant]
     Indication: BLOOD CHOLESTEROL ABNORMAL
     Dosage: 1000 mg, daily
     Dates: start: 2000
  6. RAMIPRIL [Concomitant]
     Indication: HEART DISORDER
     Dosage: 5 mg, daily
     Dates: start: 2000
  7. TOPROL XL [Concomitant]
     Dosage: 50 mg, daily
     Dates: start: 2000

REACTIONS (1)
  - Pruritus [Not Recovered/Not Resolved]
